FAERS Safety Report 6290839-2 (Version None)
Quarter: 2009Q3

REPORT INFORMATION
  Report Type: 
  Country: None (occurrence: None)
  Receive Date: 20090729
  Receipt Date: 20090729
  Transmission Date: 20100115
  Serious: Yes (Hospitalization)
  Sender: FDA-Public Use
  Company Number: None

PATIENT
  Sex: Female
  Weight: 71 kg

DRUGS (11)
  1. SEROQUEL [Suspect]
     Indication: DEMENTIA
     Dosage: AS ABOVE
     Dates: start: 20090403
  2. ATROVENT [Concomitant]
  3. O2 SUPPLEMENT [Concomitant]
  4. DIGOXIN [Concomitant]
  5. AMLODIPINE [Concomitant]
  6. SERTRALINE [Concomitant]
  7. METOPROLOL TARTRATE [Concomitant]
  8. NAMENDA [Concomitant]
  9. GALANTAMINE HYDROBROMIDE [Concomitant]
  10. LASIX [Concomitant]
  11. ASPIRIN [Concomitant]

REACTIONS (3)
  - CARDIAC FAILURE CHRONIC [None]
  - CARDIAC FAILURE CONGESTIVE [None]
  - PNEUMONIA [None]
